FAERS Safety Report 6932060-8 (Version None)
Quarter: 2010Q3

REPORT INFORMATION
  Report Type: 
  Country: None (occurrence: None)
  Receive Date: 20100812
  Receipt Date: 20090622
  Transmission Date: 20110219
  Serious: No
  Sender: FDA-Public Use
  Company Number: 2009-00153

PATIENT
  Sex: Male
  Weight: 77.1115 kg

DRUGS (1)
  1. ZICAM ALLERGY RELIEF NASAL GEL [Suspect]
     Dates: start: 20030101

REACTIONS (4)
  - AGEUSIA [None]
  - ANOSMIA [None]
  - DECREASED APPETITE [None]
  - WEIGHT DECREASED [None]
